FAERS Safety Report 4502423-9 (Version None)
Quarter: 2004Q4

REPORT INFORMATION
  Report Type: 
  Country: None (occurrence: None)
  Receive Date: 20041116
  Receipt Date: 20041104
  Transmission Date: 20050328
  Serious: Yes (Hospitalization)
  Sender: FDA-Public Use
  Company Number: PHBS2004JP14924

PATIENT
  Age: 41 Year
  Sex: Male
  Weight: 42 kg

DRUGS (11)
  1. TEGRETOL [Suspect]
     Indication: PAIN IN EXTREMITY
     Dosage: 600 MG/DAY
     Route: 048
     Dates: end: 19990101
  2. TOFRANIL [Suspect]
     Indication: PAIN IN EXTREMITY
     Dosage: 75 MG/DAY
     Route: 048
     Dates: end: 19990101
  3. INDOMETHACIN [Suspect]
     Indication: PAIN IN EXTREMITY
     Dosage: 50 MG/DAY
     Route: 048
     Dates: end: 19990101
  4. BROTIZOLAM [Concomitant]
     Dosage: 0.25 MG/DAY
     Route: 048
     Dates: end: 19990101
  5. ETIZOLAM [Concomitant]
     Dosage: 3 MG/DAY
     Route: 048
  6. ALPROSTADIL [Concomitant]
     Dosage: 20 UG/DAY
     Route: 042
     Dates: end: 19990101
  7. BERAPROST SODIUM [Concomitant]
     Dosage: 120 UG/DAY
     Route: 048
  8. MEXILETINE HCL [Concomitant]
     Dosage: 300 UG/DAY
     Route: 048
  9. EPALRESTAT [Concomitant]
     Route: 048
  10. GOSHAJINKIGAN [Concomitant]
     Route: 048
  11. INSULIN [Concomitant]

REACTIONS (3)
  - HYPOKALAEMIA [None]
  - INAPPROPRIATE ANTIDIURETIC HORMONE SECRETION [None]
  - URINE OSMOLARITY INCREASED [None]
